FAERS Safety Report 7258462-0 (Version None)
Quarter: 2011Q1

REPORT INFORMATION
  Report Type: 
  Country: None (occurrence: None)
  Receive Date: 20110129
  Receipt Date: 20100831
  Transmission Date: 20110831
  Serious: No
  Sender: FDA-Public Use
  Company Number: US-ABBOTT-10P-163-0668860-00

PATIENT
  Sex: Male
  Weight: 72.64 kg

DRUGS (5)
  1. ASACOL HD [Concomitant]
     Indication: COLITIS ULCERATIVE
  2. CELEXA [Concomitant]
     Indication: DEPRESSION
  3. HUMIRA [Suspect]
     Indication: COLITIS ULCERATIVE
     Route: 058
     Dates: start: 20100101
  4. ALPRAZOLAM [Concomitant]
     Indication: ANXIETY
  5. PREDNISONE [Concomitant]
     Indication: COLITIS ULCERATIVE
     Dosage: TAPER
     Dates: start: 20090801

REACTIONS (3)
  - INFLUENZA LIKE ILLNESS [None]
  - PAIN IN EXTREMITY [None]
  - MUSCULAR WEAKNESS [None]
